FAERS Safety Report 5731912-4 (Version None)
Quarter: 2008Q2

REPORT INFORMATION
  Report Type: 
  Country: None (occurrence: None)
  Receive Date: 20080508
  Receipt Date: 20080430
  Transmission Date: 20081010
  Serious: Yes (Other)
  Sender: FDA-Public Use
  Company Number: US-ASTRAZENECA-2008UW08919

PATIENT
  Age: 44 Year
  Sex: Female

DRUGS (6)
  1. SEROQUEL [Suspect]
     Indication: HALLUCINATION, AUDITORY
     Route: 048
     Dates: start: 20070101
  2. CLONAZEPAM [Concomitant]
  3. CYMBALTA [Concomitant]
     Route: 048
  4. ARTANE [Concomitant]
  5. STATIN THERAPY [Concomitant]
  6. THYROID THERAPY [Concomitant]

REACTIONS (2)
  - BLOOD PROLACTIN INCREASED [None]
  - BREAST DISCHARGE [None]
